FAERS Safety Report 7513651-2 (Version None)
Quarter: 2011Q2

REPORT INFORMATION
  Report Type: 
  Country: None (occurrence: None)
  Receive Date: 20110531
  Receipt Date: 20110523
  Transmission Date: 20111010
  Serious: Yes (Other)
  Sender: FDA-Public Use
  Company Number: PT-GILEAD-2011-0039778

PATIENT
  Age: 50 Year
  Sex: Female

DRUGS (4)
  1. ATRIPLA [Suspect]
     Indication: HIV INFECTION
  2. PAROXETINE HCL [Concomitant]
  3. EFAVIRENZ [Concomitant]
     Indication: HIV INFECTION
  4. TRUVADA [Concomitant]
     Indication: HIV INFECTION

REACTIONS (1)
  - HEPATIC FUNCTION ABNORMAL [None]
